FAERS Safety Report 4847284-3 (Version None)
Quarter: 2005Q4

REPORT INFORMATION
  Report Type: 
  Country: None (occurrence: None)
  Receive Date: 20051205
  Receipt Date: 20051123
  Transmission Date: 20060501
  Serious: Yes (Other)
  Sender: FDA-Public Use
  Company Number: 2005154195

PATIENT
  Age: 68 Year
  Sex: Male
  Weight: 79.8331 kg

DRUGS (6)
  1. SUDAFED 12 HOUR [Suspect]
     Indication: NASAL CONGESTION
     Dosage: 1 CAPLET ONCE DAILY PRN, ORAL
     Route: 048
     Dates: start: 19850101, end: 20050401
  2. CROMOGLICATE SODIUM (CROMOGLICATE SODIUM) [Concomitant]
  3. OMEPRAZOLE [Concomitant]
  4. ASPIRIN [Concomitant]
  5. FLUVASTATIN SODIUM (FLUVASTATIN SODIUM) [Concomitant]
  6. CLORAZEPATE DIPOTASSIUM [Concomitant]

REACTIONS (1)
  - BENIGN PROSTATIC HYPERPLASIA [None]
